FAERS Safety Report 8176422-2 (Version None)
Quarter: 2012Q1

REPORT INFORMATION
  Report Type: 
  Country: None (occurrence: None)
  Receive Date: 20120228
  Receipt Date: 20120213
  Transmission Date: 20120608
  Serious: Yes (Hospitalization)
  Sender: FDA-Public Use
  Company Number: WAES 1202USA02803

PATIENT
  Age: 67 Year
  Sex: Female
  Weight: 68.0396 kg

DRUGS (1)
  1. CAP VORINOSTAT UNK [Suspect]
     Indication: MYELODYSPLASTIC SYNDROME
     Dosage: 50 MG/BID/PO
     Route: 048
     Dates: start: 20120113

REACTIONS (9)
  - JUGULAR VEIN THROMBOSIS [None]
  - PARAESTHESIA [None]
  - HYPERHIDROSIS [None]
  - INFUSION RELATED REACTION [None]
  - FLUSHING [None]
  - ORTHOSTATIC HYPOTENSION [None]
  - DIZZINESS [None]
  - VOMITING [None]
  - DEEP VEIN THROMBOSIS [None]
